FAERS Safety Report 16181446 (Version 2)
Quarter: 2019Q2

REPORT INFORMATION
  Report Type: Report from Study
  Country: US (occurrence: US)
  Receive Date: 20190410
  Receipt Date: 20190625
  Transmission Date: 20190711
  Serious: No
  Sender: FDA-Public Use
  Company Number: PHEH2019US015604

PATIENT
  Sex: Male

DRUGS (2)
  1. ENTRESTO [Suspect]
     Active Substance: SACUBITRIL\VALSARTAN
     Indication: CARDIAC FAILURE
     Dosage: UNK UNK, BID
     Route: 048
  2. EYE DROPS [Suspect]
     Active Substance: UNSPECIFIED INGREDIENT
     Indication: EYE PRURITUS
     Route: 065

REACTIONS (5)
  - Eye pruritus [Unknown]
  - Pain in extremity [Unknown]
  - Muscular weakness [Unknown]
  - Memory impairment [Unknown]
  - Fatigue [Unknown]
